FAERS Safety Report 6405176-2 (Version None)
Quarter: 2009Q4

REPORT INFORMATION
  Report Type: 
  Country: None (occurrence: None)
  Receive Date: 20091016
  Receipt Date: 20091016
  Transmission Date: 20100525
  Serious: Yes (Hospitalization)
  Sender: FDA-Public Use
  Company Number: None

PATIENT
  Age: 17 Year
  Sex: Female
  Weight: 108.8633 kg

DRUGS (1)
  1. DEPO-PROVERA [Suspect]
     Indication: MENSTRUAL DISORDER
     Dosage: 1-SHOT SHOT
     Dates: start: 20090803

REACTIONS (4)
  - ABDOMINAL PAIN UPPER [None]
  - EDUCATIONAL PROBLEM [None]
  - MENTAL DISORDER [None]
  - VAGINAL HAEMORRHAGE [None]
